FAERS Safety Report 4407896-8 (Version None)
Quarter: 2004Q3

REPORT INFORMATION
  Report Type: 
  Country: None (occurrence: None)
  Receive Date: 20040726
  Receipt Date: 20040719
  Transmission Date: 20050211
  Serious: Yes (Hospitalization)
  Sender: FDA-Public Use
  Company Number: PHRM2004FR02367

PATIENT
  Age: 70 Year
  Sex: Male

DRUGS (3)
  1. TEGRETOL [Suspect]
     Indication: REFLEX SYMPATHETIC DYSTROPHY
     Route: 048
     Dates: start: 20040502, end: 20040605
  2. STILNOX [Concomitant]
     Route: 048
  3. AMAREL [Concomitant]
     Indication: DIABETES MELLITUS
     Route: 048

REACTIONS (7)
  - DEPRESSED LEVEL OF CONSCIOUSNESS [None]
  - FALL [None]
  - HEAD INJURY [None]
  - HYPONATRAEMIA [None]
  - LOSS OF CONSCIOUSNESS [None]
  - PNEUMONIA ASPIRATION [None]
  - SEPTIC SHOCK [None]
